FAERS Safety Report 7237916-7 (Version None)
Quarter: 2011Q1

REPORT INFORMATION
  Report Type: 
  Country: None (occurrence: None)
  Receive Date: 20110119
  Receipt Date: 20110119
  Transmission Date: 20110831
  Serious: Yes (Hospitalization, Other)
  Sender: FDA-Public Use
  Company Number: None

PATIENT
  Age: 43 Year
  Sex: Male
  Weight: 81.6 kg

DRUGS (1)
  1. QUETIAPINE [Suspect]
     Indication: PRIAPISM
     Dosage: 300 MG AT BEDTIME PO
     Route: 048
     Dates: start: 20070509, end: 20100830

REACTIONS (4)
  - TREATMENT FAILURE [None]
  - PRIAPISM [None]
  - ISCHAEMIA [None]
  - THERAPEUTIC RESPONSE UNEXPECTED [None]
